FAERS Safety Report 6695845-1 (Version None)
Quarter: 2010Q2

REPORT INFORMATION
  Report Type: 
  Country: None (occurrence: None)
  Receive Date: 20100421
  Receipt Date: 20100413
  Transmission Date: 20101027
  Serious: Yes (Hospitalization)
  Sender: FDA-Public Use
  Company Number: 1000013233

PATIENT
  Age: 99 Year
  Sex: Female

DRUGS (8)
  1. MEMANTINE ORAL             (MEMANTINE HYDROCHLORIDE) [Suspect]
     Indication: DEMENTIA ALZHEIMER'S TYPE
     Dosage: 40 MG (10 MG, 4 IN 1 D), ORAL
     Route: 048
     Dates: start: 20070101, end: 20100407
  2. MEMANTINE ORAL SOLUTION (MEMANTINE HYDROCHLORIDE) [Suspect]
     Indication: DEMENTIA ALZHEIMER'S TYPE
     Dosage: 40 MG (10 MG, 4 IN 1 D), ORAL
     Route: 048
     Dates: start: 20100410
  3. ATARAX [Suspect]
     Indication: SNEEZING
     Dates: start: 20100404, end: 20100407
  4. HALOPERIDOL [Suspect]
     Indication: SNEEZING
     Dates: start: 20100404, end: 20100407
  5. SEROQUEL [Concomitant]
  6. SINEMET [Concomitant]
  7. ASPIRIN [Concomitant]
  8. ACETYLCYSTEINE [Concomitant]

REACTIONS (4)
  - AGITATION [None]
  - DRUG TOXICITY [None]
  - FALL [None]
  - MUSCULOSKELETAL STIFFNESS [None]
